FAERS Safety Report 25043560 (Version 2)
Quarter: 2025Q2

REPORT INFORMATION
  Report Type: Spontaneous
  Country: IT (occurrence: IT)
  Receive Date: 20250306
  Receipt Date: 20250422
  Transmission Date: 20250716
  Serious: Yes (Hospitalization, Other)
  Sender: PFIZER
  Company Number: IT-UCBSA-2025010121

PATIENT
  Age: 4 Month
  Sex: Female

DRUGS (4)
  1. LEVETIRACETAM [Suspect]
     Active Substance: LEVETIRACETAM
     Indication: Severe myoclonic epilepsy of infancy
     Dosage: 300 MG, DAILY
     Dates: start: 202203
  2. LEVETIRACETAM [Suspect]
     Active Substance: LEVETIRACETAM
     Indication: Seizure
  3. CLOBAZAM [Concomitant]
     Active Substance: CLOBAZAM
  4. VALPROIC ACID [Concomitant]
     Active Substance: VALPROIC ACID

REACTIONS (6)
  - Partial seizures [Unknown]
  - Status epilepticus [Unknown]
  - Drug ineffective [Unknown]
  - Febrile convulsion [Unknown]
  - Pyrexia [Unknown]
  - Off label use [Unknown]

NARRATIVE: CASE EVENT DATE: 20220301
